FAERS Safety Report 23526484 (Version 5)
Quarter: 2024Q2

REPORT INFORMATION
  Report Type: Report from Study
  Country: KR (occurrence: KR)
  Receive Date: 20240215
  Receipt Date: 20240624
  Transmission Date: 20240716
  Serious: Yes (Life-Threatening, Other)
  Sender: FDA-Public Use
  Company Number: KR-MYLANLABS-2024M1014223

PATIENT
  Age: 49 Year
  Sex: Male
  Weight: 86 kg

DRUGS (2)
  1. LIPITOR [Suspect]
     Active Substance: ATORVASTATIN CALCIUM
     Indication: Product used for unknown indication
     Dosage: 40 MILLIGRAM, QD
     Route: 065
     Dates: start: 20231226, end: 20240213
  2. LIPITOR [Suspect]
     Active Substance: ATORVASTATIN CALCIUM
     Dosage: 80 MILLIGRAM, QD
     Route: 065
     Dates: start: 20240214, end: 20240331

REACTIONS (3)
  - Anaemia [Recovering/Resolving]
  - Haematochezia [Recovered/Resolved]
  - Adenocarcinoma [Recovering/Resolving]

NARRATIVE: CASE EVENT DATE: 20240207
